FAERS Safety Report 9061412 (Version 2)
Quarter: 2013Q1

REPORT INFORMATION
  Report Type: Spontaneous
  Country: US (occurrence: US)
  Receive Date: 20130204
  Receipt Date: 20130307
  Transmission Date: 20140127
  Serious: Yes (Other)
  Sender: FDA-Public Use
  Company Number: US-SANOFI-AVENTIS-2013SA007872

PATIENT
  Age: 72 Year
  Sex: Female
  Weight: 57 kg

DRUGS (1)
  1. PLAVIX [Suspect]

REACTIONS (3)
  - Choking [Recovered/Resolved]
  - Swollen tongue [Recovered/Resolved]
  - Tremor [Recovered/Resolved]
